FAERS Safety Report 8156212-7 (Version None)
Quarter: 2012Q1

REPORT INFORMATION
  Report Type: 
  Country: None (occurrence: None)
  Receive Date: 20120103
  Receipt Date: 20110922
  Transmission Date: 20120608
  Serious: No
  Sender: FDA-Public Use
  Company Number: AE-2011-000711

PATIENT
  Age: 59 Year
  Sex: Female

DRUGS (7)
  1. INCIVEK [Suspect]
     Dosage: 2571.4286 MG (750 MG, 1 IN 7 HR), ORAL
     Route: 048
     Dates: start: 20110630
  2. MULTIVITAMIN [Concomitant]
  3. ZOFRAN ODT (ONDANSETRON) [Concomitant]
  4. PAXIL [Concomitant]
  5. FERROUS SULFATE TAB [Concomitant]
  6. REBETOL [Concomitant]
  7. PEG-INTRON [Concomitant]

REACTIONS (6)
  - FEELING ABNORMAL [None]
  - FATIGUE [None]
  - INFLUENZA LIKE ILLNESS [None]
  - PAIN [None]
  - NAUSEA [None]
  - INAPPROPRIATE SCHEDULE OF DRUG ADMINISTRATION [None]
